FAERS Safety Report 7261633-0 (Version None)
Quarter: 2011Q1

REPORT INFORMATION
  Report Type: 
  Country: None (occurrence: None)
  Receive Date: 20110130
  Receipt Date: 20101022
  Transmission Date: 20110831
  Serious: No
  Sender: FDA-Public Use
  Company Number: US-ABBOTT-10P-163-0680531-00

PATIENT
  Age: 51 Year
  Sex: Female

DRUGS (16)
  1. SYNTHROID [Concomitant]
     Indication: HYPOTHYROIDISM
  2. MULTIVIT [Concomitant]
     Indication: PRODUCT USED FOR UNKNOWN INDICATION
  3. PROAIR HFA [Concomitant]
     Indication: ASTHMA
  4. METHOTREXATE [Concomitant]
     Indication: RHEUMATOID ARTHRITIS
  5. TRAZODONE HCL [Concomitant]
     Indication: INSOMNIA
  6. HUMIRA [Suspect]
     Indication: RHEUMATOID ARTHRITIS
     Dates: start: 20100701
  7. PLAQUENIL [Concomitant]
     Indication: RHEUMATOID ARTHRITIS
  8. OMEGA [Concomitant]
     Indication: PRODUCT USED FOR UNKNOWN INDICATION
  9. VIT D [Concomitant]
     Indication: PRODUCT USED FOR UNKNOWN INDICATION
  10. VITAMIN B [Concomitant]
     Indication: PRODUCT USED FOR UNKNOWN INDICATION
  11. GLUCOSAMINE [Concomitant]
     Indication: PRODUCT USED FOR UNKNOWN INDICATION
  12. CALCIUM [Concomitant]
     Indication: PRODUCT USED FOR UNKNOWN INDICATION
  13. ADVAIR [Concomitant]
     Indication: PRODUCT USED FOR UNKNOWN INDICATION
  14. SULFASALAZINE [Concomitant]
     Indication: RHEUMATOID ARTHRITIS
  15. INSULIN [Concomitant]
     Indication: DIABETES MELLITUS
  16. AZMACORT [Concomitant]
     Indication: ASTHMA

REACTIONS (4)
  - DYSPHONIA [None]
  - PHARYNGEAL DISORDER [None]
  - APHONIA [None]
  - DYSPHAGIA [None]
